FAERS Safety Report 13264385 (Version 6)
Quarter: 2018Q2

REPORT INFORMATION
  Report Type: Report from Study
  Country: US (occurrence: US)
  Receive Date: 20170223
  Receipt Date: 20180628
  Transmission Date: 20180711
  Serious: Yes (Other)
  Sender: FDA-Public Use
  Company Number: US-AMGEN-USASL2017026226

PATIENT
  Age: 58 Year
  Sex: Female

DRUGS (3)
  1. ENBREL [Suspect]
     Active Substance: ETANERCEPT
     Dosage: 50 MG, QWK
     Route: 065
  2. ENBREL [Suspect]
     Active Substance: ETANERCEPT
     Dosage: UNK
     Route: 065
  3. ENBREL [Suspect]
     Active Substance: ETANERCEPT
     Indication: RHEUMATOID ARTHRITIS
     Dosage: 50 MG, QWK
     Route: 065
     Dates: start: 2015

REACTIONS (9)
  - Disability [Unknown]
  - Pain [Unknown]
  - Knee arthroplasty [Unknown]
  - Malaise [Unknown]
  - Spinal operation [Unknown]
  - Fibromyalgia [Unknown]
  - Spinal fusion surgery [Unknown]
  - Confusional state [Unknown]
  - Adverse event [Unknown]

NARRATIVE: CASE EVENT DATE: 201704
